FAERS Safety Report 5320694-6 (Version None)
Quarter: 2007Q2

REPORT INFORMATION
  Report Type: 
  Country: None (occurrence: None)
  Receive Date: 20070509
  Receipt Date: 20070430
  Transmission Date: 20071010
  Serious: Yes (Other)
  Sender: FDA-Public Use
  Company Number: US-AMGEN-STX214996

PATIENT
  Sex: Male
  Weight: 99.9 kg

DRUGS (1)
  1. ENBREL [Suspect]
     Indication: PSORIASIS
     Dates: start: 20050722, end: 20061106

REACTIONS (2)
  - CARPAL TUNNEL SYNDROME [None]
  - RADICULOPATHY [None]
